FAERS Safety Report 7444878-6 (Version None)
Quarter: 2011Q2

REPORT INFORMATION
  Report Type: 
  Country: None (occurrence: None)
  Receive Date: 20110429
  Receipt Date: 20110416
  Transmission Date: 20111010
  Serious: Yes (Other)
  Sender: FDA-Public Use
  Company Number: PHHY2011US33050

PATIENT
  Age: 65 Year

DRUGS (2)
  1. GLEEVEC [Suspect]
     Dosage: 300 MG, UNK
  2. GLEEVEC [Suspect]
     Dosage: 400 MG, PER DAY

REACTIONS (5)
  - GASTROINTESTINAL TOXICITY [None]
  - OEDEMA [None]
  - BONE MARROW FAILURE [None]
  - RASH [None]
  - FATIGUE [None]
